FAERS Safety Report 7328224-4 (Version None)
Quarter: 2011Q1

REPORT INFORMATION
  Report Type: 
  Country: None (occurrence: None)
  Receive Date: 20110303
  Receipt Date: 20110222
  Transmission Date: 20110831
  Serious: Yes (Hospitalization, Other)
  Sender: FDA-Public Use
  Company Number: US-JNJFOC-20110207406

PATIENT
  Age: 39 Year
  Sex: Male

DRUGS (3)
  1. TOPIRAMATE [Suspect]
     Indication: MIGRAINE
     Route: 048
  2. TOPIRAMATE [Suspect]
     Route: 048
  3. MORPHINE [Concomitant]
     Route: 042

REACTIONS (5)
  - ANGLE CLOSURE GLAUCOMA [None]
  - CHOROIDAL EFFUSION [None]
  - IRIS ADHESIONS [None]
  - LENS DISLOCATION [None]
  - MYOPIA [None]
